FAERS Safety Report 7023660-8 (Version None)
Quarter: 2010Q3

REPORT INFORMATION
  Report Type: 
  Country: None (occurrence: None)
  Receive Date: 20100929
  Receipt Date: 20100929
  Transmission Date: 20110219
  Serious: Yes (Hospitalization)
  Sender: FDA-Public Use
  Company Number: None

PATIENT
  Age: 81 Year
  Sex: Male
  Weight: 66 kg

DRUGS (3)
  1. AMIFOSTINE [Suspect]
     Indication: PROPHYLAXIS
     Dosage: 500 MG OTHER SQ
     Route: 058
     Dates: start: 20100727, end: 20100830
  2. AMIFOSTINE [Suspect]
     Indication: RADIOTHERAPY
     Dosage: 500 MG OTHER SQ
     Route: 058
     Dates: start: 20100727, end: 20100830
  3. AMIFOSTINE [Suspect]
     Indication: TONGUE NEOPLASM MALIGNANT STAGE UNSPECIFIED
     Dosage: 500 MG OTHER SQ
     Route: 058
     Dates: start: 20100727, end: 20100830

REACTIONS (2)
  - ERYTHEMA MULTIFORME [None]
  - RADIATION SKIN INJURY [None]
